FAERS Safety Report 17651634 (Version 1)
Quarter: 2020Q2

REPORT INFORMATION
  Report Type: Spontaneous
  Country: US (occurrence: US)
  Receive Date: 20200409
  Receipt Date: 20200409
  Transmission Date: 20200713
  Serious: Yes (Hospitalization)
  Sender: FDA-Public Use
  Company Number: None

PATIENT
  Age: 71 Year
  Sex: Female
  Weight: 71.26 kg

DRUGS (2)
  1. ASPIRIN (ASPIRIN 81MG TAB, EC) [Suspect]
     Active Substance: ASPIRIN
     Indication: CARDIOVASCULAR EVENT PROPHYLAXIS
     Route: 048
     Dates: end: 20180723
  2. DICLOFENAC (DICLOFENAC NA 50MG TAB, EC) [Suspect]
     Active Substance: DICLOFENAC
     Indication: PAIN
     Route: 048
     Dates: start: 20180502, end: 20180723

REACTIONS (6)
  - Colon adenoma [None]
  - Diverticulum [None]
  - Melaena [None]
  - Haematochezia [None]
  - Gastritis [None]
  - Haematemesis [None]

NARRATIVE: CASE EVENT DATE: 20180723
